FAERS Safety Report 11597130 (Version 4)
Quarter: 2015Q4

REPORT INFORMATION
  Report Type: Report from Study
  Country: CA (occurrence: CA)
  Receive Date: 20151006
  Receipt Date: 20151215
  Transmission Date: 20160304
  Serious: Yes (Hospitalization, Other)
  Sender: FDA-Public Use
  Company Number: CA-VALIDUS PHARMACEUTICALS LLC-CA-2015VAL000607

PATIENT

DRUGS (4)
  1. METOPROLOL TARTRATE. [Suspect]
     Active Substance: METOPROLOL TARTRATE
     Indication: PRODUCT USED FOR UNKNOWN INDICATION
     Dosage: UNK
     Route: 048
  2. AFINITOR [Suspect]
     Active Substance: EVEROLIMUS
     Indication: PANCREATIC NEUROENDOCRINE TUMOUR
     Dosage: 10 MG, QD
     Route: 048
     Dates: start: 20150915
  3. CIPRO                              /00697201/ [Concomitant]
     Active Substance: CIPROFLOXACIN
     Indication: PRODUCT USED FOR UNKNOWN INDICATION
     Dosage: UNK
     Route: 048
  4. SANDOSTATIN LAR DEPOT [Suspect]
     Active Substance: OCTREOTIDE ACETATE
     Indication: PANCREATIC NEUROENDOCRINE TUMOUR
     Dosage: 30 MG, QMO (EVERY 4 WEEKS)
     Route: 030
     Dates: start: 20140501

REACTIONS (29)
  - Fall [Unknown]
  - Scab [Unknown]
  - Influenza [Recovered/Resolved]
  - Pyrexia [Recovered/Resolved]
  - Blood glucose increased [Unknown]
  - Skin irritation [Unknown]
  - Skin mass [Recovering/Resolving]
  - Malignant neoplasm progression [Unknown]
  - Blood pressure diastolic increased [Unknown]
  - Bile duct obstruction [Unknown]
  - Neoplasm [Unknown]
  - Depressed mood [Unknown]
  - Head injury [Unknown]
  - Blood pressure systolic increased [Unknown]
  - Device related infection [Unknown]
  - Pyrexia [Unknown]
  - Cough [Recovered/Resolved]
  - Body temperature decreased [Unknown]
  - Decreased appetite [Unknown]
  - Respiratory rate decreased [Unknown]
  - Contusion [Unknown]
  - Sinus congestion [Recovered/Resolved]
  - Feeling abnormal [Unknown]
  - Sepsis [Unknown]
  - Chills [Unknown]
  - Skin disorder [Recovering/Resolving]
  - Yellow skin [Unknown]
  - Eye disorder [Unknown]
  - Insomnia [Not Recovered/Not Resolved]

NARRATIVE: CASE EVENT DATE: 20140530
